FAERS Safety Report 4619299-1 (Version None)
Quarter: 2005Q2

REPORT INFORMATION
  Report Type: 
  Country: None (occurrence: None)
  Receive Date: 20050321
  Receipt Date: 20040217
  Transmission Date: 20051028
  Serious: Yes (Other)
  Sender: FDA-Public Use
  Company Number: 2004-02-1308

PATIENT
  Sex: Male

DRUGS (2)
  1. PEG-INTRON [Suspect]
     Dosage: QW SUBCUTANEOUS
     Route: 058
     Dates: start: 20040127, end: 20040210
  2. REBETOL [Suspect]
     Dosage: ORAL
     Route: 048
     Dates: start: 20040127, end: 20040210

REACTIONS (4)
  - ABDOMINAL PAIN [None]
  - NAUSEA [None]
  - PNEUMONIA [None]
  - VOMITING [None]
